FAERS Safety Report 15482633 (Version 1)
Quarter: 2018Q4

REPORT INFORMATION
  Report Type: Spontaneous
  Country: BE (occurrence: BE)
  Receive Date: 20181010
  Receipt Date: 20181010
  Transmission Date: 20190205
  Serious: Yes (Other)
  Sender: FDA-Public Use
  Company Number: BE-PFIZER INC-2018402545

PATIENT
  Sex: Male

DRUGS (6)
  1. MOXON [Suspect]
     Active Substance: MOXONIDINE
     Dosage: 0.2 MG, UNK
     Route: 048
  2. XANAX [Suspect]
     Active Substance: ALPRAZOLAM
     Dosage: 1 MG, 1X/DAY (2 DF, 1X/DAY (0.5 MG))
     Route: 048
  3. BELSAR PLUS [Suspect]
     Active Substance: HYDROCHLOROTHIAZIDE\OLMESARTAN MEDOXOMIL
     Dosage: 1 DF, 1X/DAY,  20MG/12.5MG
     Route: 048
  4. SPIRONOLACTONE EUROGENERICS [Suspect]
     Active Substance: SPIRONOLACTONE
     Dosage: 25 MG, 1X/DAY (1 DF, 1X/DAY (25 MG))
     Route: 048
  5. NEBIVOLOL APOTEX [Suspect]
     Active Substance: NEBIVOLOL
     Dosage: 10 MG, 1X/DAY (2 DF, 1X/DAY (5 MG))
     Route: 048
  6. ASAFLOW [Concomitant]
     Active Substance: ASPIRIN
     Dosage: 80 MG, 1X/DAY
     Route: 048

REACTIONS (1)
  - Bradycardia [Unknown]
